FAERS Safety Report 24622444 (Version 1)
Quarter: 2024Q4

REPORT INFORMATION
  Report Type: Spontaneous
  Country: US (occurrence: US)
  Receive Date: 20241115
  Receipt Date: 20241115
  Transmission Date: 20250115
  Serious: No
  Sender: ROCHE
  Company Number: US-ROCHE-10000131104

PATIENT
  Age: 96 Year
  Sex: Female

DRUGS (3)
  1. CELLCEPT [Suspect]
     Active Substance: MYCOPHENOLATE MOFETIL
     Indication: Pemphigus
     Route: 065
  2. PREDNISONE [Concomitant]
     Active Substance: PREDNISONE
  3. LOSARTAN [Concomitant]
     Active Substance: LOSARTAN

REACTIONS (4)
  - Off label use [Unknown]
  - Stomatitis [Unknown]
  - Blood pressure increased [Not Recovered/Not Resolved]
  - Feeding disorder [Not Recovered/Not Resolved]

NARRATIVE: CASE EVENT DATE: 20240301
